FAERS Safety Report 12301361 (Version 1)
Quarter: 2016Q2

REPORT INFORMATION
  Report Type: Other
  Country: GB (occurrence: GB)
  Receive Date: 20160425
  Receipt Date: 20160425
  Transmission Date: 20160815
  Serious: Yes (Disabling)
  Sender: FDA-Public Use
  Company Number: GB-MYLANLABS-2016M1016230

PATIENT

DRUGS (2)
  1. FLUOXETINE [Suspect]
     Active Substance: FLUOXETINE HYDROCHLORIDE
     Indication: PREMATURE EJACULATION
     Dosage: 2 DF, QD
     Dates: start: 20160118
  2. DAPOXETINE [Concomitant]
     Dosage: 1 DF, (1-3 HOURS BEFORE INTERCOURSE)
     Dates: start: 20150909, end: 20160118

REACTIONS (1)
  - Tinnitus [Not Recovered/Not Resolved]

NARRATIVE: CASE EVENT DATE: 20160407
